FAERS Safety Report 8793744 (Version 2)
Quarter: 2012Q4

REPORT INFORMATION
  Report Type: 
  Country: US (occurrence: US)
  Receive Date: 20120917
  Receipt Date: 20121106
  Transmission Date: 20130627
  Serious: No
  Sender: FDA-Public Use
  Company Number: US-VERTEX PHARMACEUTICAL INC.-2012-019859

PATIENT
  Age: 53 None
  Sex: Male
  Weight: 119 kg

DRUGS (11)
  1. INCIVEK [Suspect]
     Indication: HEPATITIS C
     Dosage: 750 mg, tid
     Route: 048
     Dates: start: 20120814
  2. PEGASYS [Suspect]
     Indication: HEPATITIS C
     Dosage: 180 ?g, UNK
     Route: 058
     Dates: start: 20120814
  3. RIBAVIRIN [Suspect]
     Indication: HEPATITIS C
     Dosage: 600 mg, bid
     Route: 048
     Dates: start: 20120814
  4. AMLODIPINE [Concomitant]
     Indication: HYPERTENSION
     Dosage: 10 mg, qd
     Route: 048
  5. LISINOPRIL/HCTZ [Concomitant]
     Indication: HYPERTENSION
     Dosage: UNK, qd
     Route: 048
  6. METOPROLOL [Concomitant]
     Indication: HYPERTENSION
     Dosage: 100 mg, qd
     Route: 048
  7. METHYLDOPA [Concomitant]
     Indication: HYPERTENSION
     Dosage: 250 mg, qd
     Route: 048
  8. CLONIDINE HCL [Concomitant]
     Indication: HYPERTENSION
     Dosage: 0.1 mg, qd
     Route: 048
  9. FUROSEMIDE [Concomitant]
     Dosage: 20 mg, qd
     Route: 048
  10. SPIRONALACTONE [Concomitant]
     Dosage: 25 mg, qd
     Route: 048
  11. MOTRIN [Concomitant]
     Indication: DISCOMFORT
     Dosage: UNK, prn
     Route: 048

REACTIONS (17)
  - Dyspnoea exertional [Not Recovered/Not Resolved]
  - Injection site erythema [Not Recovered/Not Resolved]
  - Headache [Not Recovered/Not Resolved]
  - Muscle spasms [Recovered/Resolved]
  - Irritability [Not Recovered/Not Resolved]
  - Feeling abnormal [Not Recovered/Not Resolved]
  - Malaise [Not Recovered/Not Resolved]
  - Decreased appetite [Not Recovered/Not Resolved]
  - Flatulence [Not Recovered/Not Resolved]
  - Dry skin [Not Recovered/Not Resolved]
  - Fatigue [Not Recovered/Not Resolved]
  - Rash [Not Recovered/Not Resolved]
  - Proctalgia [Not Recovered/Not Resolved]
  - Anorectal discomfort [Not Recovered/Not Resolved]
  - Diarrhoea [Not Recovered/Not Resolved]
  - Pruritus [Not Recovered/Not Resolved]
  - Nausea [Recovered/Resolved]
